FAERS Safety Report 16182669 (Version 3)
Quarter: 2019Q2

REPORT INFORMATION
  Report Type: Report from Study
  Country: US (occurrence: US)
  Receive Date: 20190411
  Receipt Date: 20190510
  Transmission Date: 20190711
  Serious: Yes (Hospitalization, Other)
  Sender: FDA-Public Use
  Company Number: US-GILEAD-2019-0401660

PATIENT
  Age: 47 Year
  Sex: Male

DRUGS (8)
  1. FUROSEMIDE. [Concomitant]
     Active Substance: FUROSEMIDE
  2. AMLODIPINE [Concomitant]
     Active Substance: AMLODIPINE BESYLATE
  3. PANTOPRAZOLE [Concomitant]
     Active Substance: PANTOPRAZOLE
  4. LOSARTAN. [Concomitant]
     Active Substance: LOSARTAN
  5. AMBRISENTAN [Suspect]
     Active Substance: AMBRISENTAN
     Indication: PRODUCT USED FOR UNKNOWN INDICATION
     Dosage: 5 MG
     Route: 065
     Dates: start: 20150514
  6. ABACAVIR. [Concomitant]
     Active Substance: ABACAVIR
  7. DOLUTEGRAVIR [Concomitant]
     Active Substance: DOLUTEGRAVIR
  8. LAMIVUDINE. [Concomitant]
     Active Substance: LAMIVUDINE

REACTIONS (3)
  - Bedridden [Unknown]
  - Pneumonia [Recovered/Resolved]
  - Malaise [Unknown]

NARRATIVE: CASE EVENT DATE: 20190403
